FAERS Safety Report 13300210 (Version 1)
Quarter: 2017Q1

REPORT INFORMATION
  Report Type: Spontaneous
  Country: SE (occurrence: SE)
  Receive Date: 20170307
  Receipt Date: 20170307
  Transmission Date: 20170428
  Serious: Yes (Hospitalization, Disabling, Congenital Anomaly)
  Sender: FDA-Public Use
  Company Number: SE-CONCORDIA PHARMACEUTICALS INC.-GSH201703-001438

PATIENT
  Age: 43 Year
  Sex: Male

DRUGS (2)
  1. PREDNISOLONE. [Suspect]
     Active Substance: PREDNISOLONE
     Route: 048
  2. NO DRUG NAME [Suspect]
     Active Substance: UNSPECIFIED INGREDIENT

REACTIONS (2)
  - Osteomyelitis acute [Not Recovered/Not Resolved]
  - Osteonecrosis [Not Recovered/Not Resolved]
